FAERS Safety Report 4539282-4 (Version None)
Quarter: 2004Q4

REPORT INFORMATION
  Report Type: 
  Country: None (occurrence: None)
  Receive Date: 20041222
  Receipt Date: 20041215
  Transmission Date: 20050328
  Serious: Yes (Other)
  Sender: FDA-Public Use
  Company Number: 2004106502

PATIENT
  Sex: Female

DRUGS (3)
  1. CITALOR (ATORVASTATIN) [Suspect]
     Indication: DYSLIPIDAEMIA
     Dosage: 10 MG (10 MG, 1 IN 1 D), ORAL
     Route: 048
     Dates: start: 20040101, end: 20041101
  2. ALL OTHER NON-THERAPEUTIC PRODUCTS (ALL OTHER NON-THERAPEUTIC PRODUCTS [Suspect]
     Indication: DYSLIPIDAEMIA
     Dosage: ORAL
     Route: 048
  3. ALL-OTHER NON-THERAPEUTIC PRODUCTS ( ALL OTHER NON-THERAPEUTIC PRODUCT [Suspect]
     Indication: DYSLIPIDAEMIA
     Dosage: ORAL
     Route: 048

REACTIONS (3)
  - BONE NEOPLASM [None]
  - PAIN [None]
  - PAIN IN EXTREMITY [None]
